FAERS Safety Report 15225929 (Version 1)
Quarter: 2018Q3

REPORT INFORMATION
  Report Type: Spontaneous
  Country: FR (occurrence: FR)
  Receive Date: 20180801
  Receipt Date: 20180801
  Transmission Date: 20181010
  Serious: Yes (Death, Hospitalization, Congenital Anomaly)
  Sender: FDA-Public Use
  Company Number: FR-TEVA-2018-FR-933890

PATIENT
  Age: 52 Year
  Sex: Male

DRUGS (1)
  1. METHOTREXATE. [Suspect]
     Active Substance: METHOTREXATE
     Indication: PSORIASIS
     Dosage: 10 MILLIGRAM DAILY; OVER THREE CONSECUTIVE DAYS
     Route: 065

REACTIONS (9)
  - Aplasia [Recovered/Resolved]
  - Pancytopenia [Unknown]
  - Overdose [Unknown]
  - Acute kidney injury [Unknown]
  - Acute hepatic failure [Unknown]
  - Mucormycosis [Recovering/Resolving]
  - Septic shock [Fatal]
  - Dermatitis exfoliative generalised [Unknown]
  - Skin disorder [Unknown]
